FAERS Safety Report 14335663 (Version 4)
Quarter: 2018Q2

REPORT INFORMATION
  Report Type: Report from Study
  Country: CA (occurrence: CA)
  Receive Date: 20171229
  Receipt Date: 20180508
  Transmission Date: 20180711
  Serious: Yes (Other)
  Sender: FDA-Public Use
  Company Number: CA-ROCHE-2009237

PATIENT
  Age: 49 Year
  Sex: Female
  Weight: 91.9 kg

DRUGS (25)
  1. TYLENOL [Concomitant]
     Active Substance: ACETAMINOPHEN
     Route: 048
     Dates: start: 20161208, end: 20161208
  2. TYLENOL [Concomitant]
     Active Substance: ACETAMINOPHEN
     Route: 048
     Dates: start: 20170105, end: 20170105
  3. LOVENOX [Concomitant]
     Active Substance: ENOXAPARIN SODIUM
     Indication: DEEP VEIN THROMBOSIS
     Dosage: (100 MG,2 IN 1 D)
     Route: 065
     Dates: start: 20170202
  4. HYDROCORTISONE. [Concomitant]
     Active Substance: HYDROCORTISONE
     Route: 042
     Dates: start: 20170105, end: 20170105
  5. TYLENOL [Concomitant]
     Active Substance: ACETAMINOPHEN
     Indication: PROPHYLAXIS
     Route: 048
     Dates: start: 20161019, end: 20161019
  6. HEPARIN [Concomitant]
     Active Substance: HEPARIN SODIUM
     Indication: PRODUCT USED FOR UNKNOWN INDICATION
     Dosage: THERAPY DATES- UNKNOWN
     Route: 065
  7. RITUXIMAB. [Suspect]
     Active Substance: RITUXIMAB
     Indication: B-CELL LYMPHOMA
     Dosage: (746.25 MG/M2,1 IN 2 D) MOST RECENTLY RECEIVED CYCLE 4?375 MG/M2, DAY 08 IN CYCLE 1. STARTED AT 13:1
     Route: 042
     Dates: start: 20161019, end: 20170201
  8. CC-122 [Suspect]
     Active Substance: INVESTIGATIONAL PRODUCT
     Indication: B-CELL LYMPHOMA
     Dosage: (3 MG, 5 OUT OF EVERY 7 DAYS)
     Route: 048
     Dates: start: 20161012, end: 20170201
  9. DEXILANT [Concomitant]
     Active Substance: DEXLANSOPRAZOLE
     Indication: PROPHYLAXIS
     Route: 048
     Dates: start: 2016
  10. GRAVOL [Concomitant]
     Active Substance: DIMENHYDRINATE
     Indication: PROPHYLAXIS
     Route: 042
     Dates: start: 20161019, end: 20161019
  11. LACTULOSE. [Concomitant]
     Active Substance: LACTULOSE
     Indication: CONSTIPATION PROPHYLAXIS
     Dosage: 15-30 MLS PRN
     Route: 048
     Dates: start: 20161012
  12. TINZAPARIN [Concomitant]
     Active Substance: TINZAPARIN
     Route: 065
     Dates: start: 20161026
  13. RITUXIMAB. [Suspect]
     Active Substance: RITUXIMAB
     Dosage: (375 MG/M2,1 IN 2 D)
     Route: 042
     Dates: start: 20170105, end: 20170201
  14. RITUXIMAB. [Suspect]
     Active Substance: RITUXIMAB
     Route: 042
     Dates: start: 20170209
  15. CC-122 [Suspect]
     Active Substance: INVESTIGATIONAL PRODUCT
     Route: 048
     Dates: start: 20170208
  16. METOCLOPRAMIDE. [Concomitant]
     Active Substance: METOCLOPRAMIDE
     Indication: NAUSEA
     Dosage: (10 MG,1 IN 6 HR)
     Route: 048
     Dates: start: 20161123, end: 20170119
  17. HYDROCORTISONE. [Concomitant]
     Active Substance: HYDROCORTISONE
     Route: 042
     Dates: start: 20161110, end: 20161110
  18. MORPHINE [Concomitant]
     Active Substance: MORPHINE
     Indication: PAIN IN EXTREMITY
     Route: 048
     Dates: start: 20161012
  19. TINZAPARIN [Concomitant]
     Active Substance: TINZAPARIN
     Route: 065
     Dates: start: 20170125
  20. SOLU-CORTEF [Concomitant]
     Active Substance: HYDROCORTISONE SODIUM SUCCINATE
     Route: 042
     Dates: start: 20161019, end: 20161019
  21. M-ESLON [Concomitant]
     Active Substance: MORPHINE SULFATE
     Indication: PAIN IN EXTREMITY
     Route: 048
     Dates: start: 20170118
  22. ASPIRIN. [Concomitant]
     Active Substance: ASPIRIN
     Dosage: BY MOUTH
     Route: 048
     Dates: start: 201608, end: 20160929
  23. HYDROCORTISONE. [Concomitant]
     Active Substance: HYDROCORTISONE
     Route: 042
     Dates: start: 20161019, end: 20161019
  24. SENOKOT [Concomitant]
     Active Substance: SENNOSIDES
     Indication: CONSTIPATION PROPHYLAXIS
     Dosage: 1 OR 2 TABS
     Route: 048
     Dates: start: 20161012
  25. OXYCODONE [Concomitant]
     Active Substance: OXYCODONE
     Dosage: 1 OR 2 TABLETS QHS (EVERY BED TIME)?PRN BY MOUTH
     Route: 048
     Dates: start: 201608, end: 20161012

REACTIONS (2)
  - Pulmonary embolism [Recovered/Resolved]
  - Deep vein thrombosis [Recovered/Resolved with Sequelae]

NARRATIVE: CASE EVENT DATE: 20161019
